FAERS Safety Report 12708883 (Version 1)
Quarter: 2016Q3

REPORT INFORMATION
  Report Type: Spontaneous
  Country: BR (occurrence: BR)
  Receive Date: 20160901
  Receipt Date: 20160901
  Transmission Date: 20161109
  Serious: Yes (Death, Life-Threatening, Hospitalization, Other)
  Sender: FDA-Public Use
  Company Number: BR-ASTRAZENECA-2016SE92344

PATIENT
  Sex: Male

DRUGS (3)
  1. ATACAND [Suspect]
     Active Substance: CANDESARTAN CILEXETIL
     Indication: BLOOD PRESSURE ABNORMAL
     Route: 048
  2. ATACAND [Suspect]
     Active Substance: CANDESARTAN CILEXETIL
     Indication: BLOOD PRESSURE ABNORMAL
     Dosage: 1/2 TABLET
     Route: 048
  3. CRESTOR [Suspect]
     Active Substance: ROSUVASTATIN CALCIUM
     Indication: ANTICOAGULANT THERAPY
     Dosage: 5.0MG UNKNOWN
     Route: 048

REACTIONS (8)
  - Pyrexia [Fatal]
  - Intentional product misuse [Recovered/Resolved]
  - Apallic syndrome [Fatal]
  - Bacterial infection [Fatal]
  - Peripheral coldness [Fatal]
  - Septic shock [Fatal]
  - Brain stem stroke [Fatal]
  - Cardiac function test abnormal [Recovered/Resolved]

NARRATIVE: CASE EVENT DATE: 20160126
